FAERS Safety Report 24607852 (Version 2)
Quarter: 2024Q4

REPORT INFORMATION
  Report Type: Spontaneous
  Country: US (occurrence: US)
  Receive Date: 20241112
  Receipt Date: 20241128
  Transmission Date: 20250115
  Serious: No
  Sender: BRISTOL-MYERS SQUIBB COMPANY
  Company Number: US-BRISTOL-MYERS SQUIBB COMPANY-2024-175679

PATIENT
  Age: 84 Year
  Sex: Female

DRUGS (2)
  1. LENALIDOMIDE [Suspect]
     Active Substance: LENALIDOMIDE
     Indication: Plasma cell myeloma
     Route: 048
  2. LENALIDOMIDE [Suspect]
     Active Substance: LENALIDOMIDE
     Dosage: FREQ: 1 CAPSULE EVERY OTHER DAY FOR 28 DAYS
     Route: 048

REACTIONS (5)
  - Product prescribing issue [Unknown]
  - Haemoglobin decreased [Recovering/Resolving]
  - Off label use [Unknown]
  - Therapy interrupted [Unknown]
  - Pruritus [Not Recovered/Not Resolved]
